FAERS Safety Report 23876150 (Version 7)
Quarter: 2024Q4

REPORT INFORMATION
  Report Type: Spontaneous
  Country: ES (occurrence: ES)
  Receive Date: 20240520
  Receipt Date: 20241028
  Transmission Date: 20250114
  Serious: Yes (Hospitalization, Other)
  Sender: ELI LILLY AND COMPANY
  Company Number: ES-GILEAD-2024-0671893

PATIENT
  Sex: Male
  Weight: 56.7 kg

DRUGS (12)
  1. GEMCITABINE HYDROCHLORIDE [Suspect]
     Active Substance: GEMCITABINE HYDROCHLORIDE
     Indication: Transitional cell carcinoma
     Dosage: 1600 MG, CYCLICAL (D1 AND D8 EVERY 21 DAYS)
     Route: 042
     Dates: start: 20240416, end: 20240423
  2. GEMCITABINE HYDROCHLORIDE [Suspect]
     Active Substance: GEMCITABINE HYDROCHLORIDE
     Dosage: 1300 MG, CYCLICAL (D1 AND D8 EVERY 21 DAYS)
     Route: 042
     Dates: start: 20240416, end: 20240611
  3. CARBOPLATIN [Suspect]
     Active Substance: CARBOPLATIN
     Indication: Transitional cell carcinoma
     Dosage: 294 MG, CYCLICAL (D1 EVERY 21 DAYS)
     Route: 042
     Dates: start: 20240416, end: 20240416
  4. CARBOPLATIN [Suspect]
     Active Substance: CARBOPLATIN
     Dosage: 240 MG, CYCLICAL (D1 EVERY 21 DAYS)
     Route: 042
     Dates: start: 20240416, end: 20240604
  5. CARBOPLATIN [Suspect]
     Active Substance: CARBOPLATIN
     Dosage: 210 MG, CYCLICAL (D1 EVERY 21 DAYS)
     Route: 042
     Dates: start: 20240604
  6. TAMSULOSIN HYDROCHLORIDE [Concomitant]
     Active Substance: TAMSULOSIN HYDROCHLORIDE
     Indication: Benign prostatic hyperplasia
     Dosage: UNK, UNKNOWN
     Route: 065
     Dates: start: 20240422
  7. ALDACTONE [Concomitant]
     Active Substance: SPIRONOLACTONE
     Indication: Dilated cardiomyopathy
     Dosage: UNK, UNKNOWN
     Route: 065
     Dates: start: 20221230
  8. OLODATEROL HYDROCHLORIDE\TIOTROPIUM BROMIDE MONOHYDRATE [Concomitant]
     Active Substance: OLODATEROL HYDROCHLORIDE\TIOTROPIUM BROMIDE MONOHYDRATE
     Indication: Chronic obstructive pulmonary disease
     Dosage: UNK
     Route: 065
     Dates: start: 20221230
  9. JARDIANCE [Concomitant]
     Active Substance: EMPAGLIFLOZIN
     Indication: Dilated cardiomyopathy
     Dosage: UNK, UNKNOWN
     Route: 065
     Dates: start: 20220128
  10. ENTRESTO [Concomitant]
     Active Substance: SACUBITRIL\VALSARTAN
     Indication: Dilated cardiomyopathy
     Dosage: UNK, UNKNOWN
     Route: 065
     Dates: start: 20221230
  11. ASPIRIN [Concomitant]
     Active Substance: ASPIRIN
     Indication: Dilated cardiomyopathy
     Dosage: UNK, UNKNOWN
     Route: 065
     Dates: start: 20231024
  12. BISOPROLOL [Concomitant]
     Active Substance: BISOPROLOL\BISOPROLOL FUMARATE
     Indication: Dilated cardiomyopathy
     Dosage: UNK, UNKNOWN
     Route: 065
     Dates: start: 20221230

REACTIONS (9)
  - Neutropenic sepsis [Recovered/Resolved]
  - Staphylococcal bacteraemia [Recovered/Resolved]
  - Abdominal sepsis [Not Recovered/Not Resolved]
  - Staphylococcal skin infection [Recovered/Resolved]
  - Hypotension [Unknown]
  - Dermatitis psoriasiform [Unknown]
  - Platelet count decreased [Unknown]
  - Urinary tract infection [Unknown]
  - Off label use [Unknown]

NARRATIVE: CASE EVENT DATE: 20240416
